FAERS Safety Report 7236707-0 (Version None)
Quarter: 2011Q1

REPORT INFORMATION
  Report Type: 
  Country: None (occurrence: None)
  Receive Date: 20110112
  Receipt Date: 20100510
  Transmission Date: 20110831
  Serious: Yes (Hospitalization)
  Sender: FDA-Public Use
  Company Number: COM10-0670

PATIENT
  Age: 7 Month
  Sex: Male

DRUGS (1)
  1. QPAP INFANT DROPS (QUALITEST) [Suspect]
     Indication: PYREXIA
     Dosage: 0.2ML, PO/1 SINGLE DOSE
     Route: 048

REACTIONS (2)
  - HYPERSENSITIVITY [None]
  - ADVERSE DRUG REACTION [None]
